FAERS Safety Report 23073943 (Version 1)
Quarter: 2023Q4

REPORT INFORMATION
  Report Type: Spontaneous
  Country: US (occurrence: None)
  Receive Date: 20231016
  Receipt Date: 20231016
  Transmission Date: 20240109
  Serious: Yes (Hospitalization, Other)
  Sender: FDA-Public Use
  Company Number: None

PATIENT
  Sex: 0

DRUGS (1)
  1. CARVYKTI [Suspect]
     Active Substance: CILTACABTAGENE AUTOLEUCEL
     Dates: start: 20230903, end: 20230903

REACTIONS (8)
  - Cytokine release syndrome [None]
  - Diplopia [None]
  - Facial paresis [None]
  - Hypoaesthesia [None]
  - Hypoaesthesia [None]
  - Areflexia [None]
  - Guillain-Barre syndrome [None]
  - Neurological symptom [None]

NARRATIVE: CASE EVENT DATE: 20230914
